FAERS Safety Report 12177178 (Version 2)
Quarter: 2016Q2

REPORT INFORMATION
  Report Type: Report from Study
  Country: US (occurrence: US)
  Receive Date: 20160314
  Receipt Date: 20160505
  Transmission Date: 20160815
  Serious: Yes (Hospitalization)
  Sender: FDA-Public Use
  Company Number: PHHO2014US019045

PATIENT
  Age: 65 Year
  Sex: Male
  Weight: 70.7 kg

DRUGS (3)
  1. GW572016 [Suspect]
     Active Substance: LAPATINIB
     Indication: NON-SMALL CELL LUNG CANCER
     Dosage: 1250 MG, QD
     Route: 048
     Dates: start: 20141126, end: 20141209
  2. GW572016 [Suspect]
     Active Substance: LAPATINIB
     Dosage: 1250 MG, QD
     Route: 048
     Dates: end: 20150430
  3. DOCETAXEL. [Suspect]
     Active Substance: DOCETAXEL
     Indication: NEOPLASM
     Dosage: 75 MG/M2, CYCLIC
     Route: 042
     Dates: start: 20141126

REACTIONS (1)
  - Dyspnoea [Recovered/Resolved]

NARRATIVE: CASE EVENT DATE: 20141205
